FAERS Safety Report 4638972-2 (Version None)
Quarter: 2005Q2

REPORT INFORMATION
  Report Type: 
  Country: None (occurrence: None)
  Receive Date: 20050415
  Receipt Date: 20050415
  Transmission Date: 20051028
  Serious: Yes (Hospitalization)
  Sender: FDA-Public Use
  Company Number: None

PATIENT
  Age: 52 Year
  Sex: Female

DRUGS (3)
  1. TEQUIN [Suspect]
     Indication: BRONCHITIS
     Dosage: 400MG 1 DAY (USED AS DIRECTED)
  2. TEQUIN [Suspect]
     Indication: CHEST DISCOMFORT
     Dosage: 400MG 1 DAY (USED AS DIRECTED)
  3. TEQUIN [Suspect]
     Indication: PROPHYLAXIS
     Dosage: 400MG 1 DAY (USED AS DIRECTED)

REACTIONS (1)
  - HYPERGLYCAEMIA [None]
